FAERS Safety Report 12394366 (Version 6)
Quarter: 2017Q1

REPORT INFORMATION
  Report Type: Report from Study
  Country: US (occurrence: US)
  Receive Date: 20160523
  Receipt Date: 20170221
  Transmission Date: 20170428
  Serious: Yes (Hospitalization)
  Sender: FDA-Public Use
  Company Number: US-SA-2016SA058813

PATIENT
  Age: 58 Year
  Sex: Female

DRUGS (23)
  1. LEUCOVORIN. [Suspect]
     Active Substance: LEUCOVORIN
     Indication: COLORECTAL CANCER METASTATIC
     Route: 041
     Dates: start: 20151208, end: 20151208
  2. LEUCOVORIN. [Suspect]
     Active Substance: LEUCOVORIN
     Indication: COLORECTAL CANCER METASTATIC
     Route: 041
     Dates: start: 20160202, end: 20160202
  3. LIDOCAINE. [Concomitant]
     Active Substance: LIDOCAINE
     Route: 065
     Dates: start: 20160103
  4. BENZOCAINE-MENTHOL [Concomitant]
     Route: 065
     Dates: start: 20160103
  5. 5-FU [Suspect]
     Active Substance: FLUOROURACIL
     Indication: COLORECTAL CANCER METASTATIC
     Route: 040
     Dates: start: 20151208, end: 20151208
  6. DILTIAZEM. [Concomitant]
     Active Substance: DILTIAZEM
     Route: 065
     Dates: start: 20151202
  7. LISINOPRIL. [Concomitant]
     Active Substance: LISINOPRIL
     Route: 065
     Dates: start: 2015
  8. GABAPENTIN. [Concomitant]
     Active Substance: GABAPENTIN
     Route: 065
     Dates: start: 20060111
  9. MICAFUNGIN [Concomitant]
     Active Substance: MICAFUNGIN
     Route: 065
     Dates: start: 20160125, end: 20160323
  10. AFLIBERCEPT [Suspect]
     Active Substance: AFLIBERCEPT
     Indication: COLORECTAL CANCER METASTATIC
     Route: 041
     Dates: start: 20160202, end: 20160202
  11. IRINOTECAN [Suspect]
     Active Substance: IRINOTECAN
     Indication: COLORECTAL CANCER METASTATIC
     Route: 041
     Dates: start: 20160202, end: 20160202
  12. CARDIZEM CD [Concomitant]
     Active Substance: DILTIAZEM HYDROCHLORIDE
     Route: 065
     Dates: start: 2015
  13. MAGIC MOUTHWASH [Concomitant]
     Active Substance: DIPHENHYDRAMINE HYDROCHLORIDE\LIDOCAINE HYDROCHLORIDE\NYSTATIN
     Route: 065
     Dates: start: 20151230, end: 2016
  14. MORPHINE [Concomitant]
     Active Substance: MORPHINE
     Route: 065
     Dates: start: 20160111
  15. ACETAMINOPHEN W/HYDROCODONE [Concomitant]
     Active Substance: ACETAMINOPHEN\HYDROCODONE
     Route: 065
     Dates: start: 20141020
  16. 5-FU [Suspect]
     Active Substance: FLUOROURACIL
     Indication: COLORECTAL CANCER METASTATIC
     Route: 040
     Dates: start: 20160202, end: 20160202
  17. NYSTATIN. [Concomitant]
     Active Substance: NYSTATIN
     Route: 065
     Dates: start: 20160103
  18. IRINOTECAN [Suspect]
     Active Substance: IRINOTECAN
     Indication: COLORECTAL CANCER METASTATIC
     Route: 041
     Dates: start: 20151208, end: 20151208
  19. 5-FU [Suspect]
     Active Substance: FLUOROURACIL
     Indication: COLORECTAL CANCER METASTATIC
     Route: 041
     Dates: start: 20151208
  20. 5-FU [Suspect]
     Active Substance: FLUOROURACIL
     Indication: COLORECTAL CANCER METASTATIC
     Route: 041
     Dates: start: 20160202
  21. AFLIBERCEPT [Suspect]
     Active Substance: AFLIBERCEPT
     Indication: COLORECTAL CANCER METASTATIC
     Route: 041
     Dates: start: 20151208, end: 20151208
  22. PROTONIX [Concomitant]
     Active Substance: PANTOPRAZOLE SODIUM
     Route: 065
     Dates: start: 2015
  23. TRAZODONE [Concomitant]
     Active Substance: TRAZODONE HYDROCHLORIDE
     Route: 065
     Dates: start: 2015

REACTIONS (4)
  - Abdominal pain [Recovered/Resolved]
  - Delirium [Recovered/Resolved]
  - Sepsis [Recovered/Resolved]
  - Enterocolitis infectious [Recovered/Resolved]

NARRATIVE: CASE EVENT DATE: 20160202
